FAERS Safety Report 18815928 (Version 1)
Quarter: 2021Q1

REPORT INFORMATION
  Report Type: Spontaneous
  Country: US (occurrence: US)
  Receive Date: 20210201
  Receipt Date: 20210201
  Transmission Date: 20210419
  Serious: No
  Sender: FDA-Public Use
  Company Number: US-AJANTA PHARMA USA INC.-2106089

PATIENT
  Age: 75 Year
  Sex: Female
  Weight: 63.64 kg

DRUGS (4)
  1. PROLIA [Concomitant]
     Active Substance: DENOSUMAB
  2. CRESTOR [Concomitant]
     Active Substance: ROSUVASTATIN CALCIUM
  3. DULOXETINE (ANDA 208706) [Suspect]
     Active Substance: DULOXETINE
     Indication: BACK PAIN
     Route: 048
     Dates: start: 201910
  4. RESTASIS [Concomitant]
     Active Substance: CYCLOSPORINE
     Route: 047

REACTIONS (5)
  - Wrong technique in product usage process [Recovered/Resolved]
  - Dizziness [Recovering/Resolving]
  - Therapeutic product effect incomplete [Recovered/Resolved]
  - Tinnitus [Not Recovered/Not Resolved]
  - Vertigo [Recovering/Resolving]

NARRATIVE: CASE EVENT DATE: 201910
